FAERS Safety Report 14144483 (Version 5)
Quarter: 2018Q2

REPORT INFORMATION
  Report Type: Spontaneous
  Country: FR (occurrence: FR)
  Receive Date: 20171031
  Receipt Date: 20180604
  Transmission Date: 20180711
  Serious: Yes (Death, Life-Threatening, Other)
  Sender: FDA-Public Use
  Company Number: FR-SUN PHARMACEUTICAL INDUSTRIES LTD-2017R1-143286

PATIENT
  Age: 67 Year
  Sex: Male
  Weight: 83.36 kg

DRUGS (10)
  1. COUMADIN [Interacting]
     Active Substance: WARFARIN SODIUM
     Indication: PRODUCT USED FOR UNKNOWN INDICATION
     Dosage: DAILY ()
     Route: 065
  2. BISOPROLOL [Concomitant]
     Active Substance: BISOPROLOL
     Indication: PRODUCT USED FOR UNKNOWN INDICATION
     Dosage: DAILY ()
     Route: 065
  3. ACETAMINOPHEN. [Concomitant]
     Active Substance: ACETAMINOPHEN
     Indication: PHARYNGITIS
     Dosage: DAILY ()
     Route: 065
  4. ATORVASTATIN [Concomitant]
     Active Substance: ATORVASTATIN
     Indication: PRODUCT USED FOR UNKNOWN INDICATION
     Dosage: DAILY ()
     Route: 065
  5. CLOPIDOGREL [Concomitant]
     Active Substance: CLOPIDOGREL BISULFATE
     Indication: ANTIPLATELET THERAPY
     Dosage: DAILY ()
     Route: 065
  6. OMEPRAZOLE. [Concomitant]
     Active Substance: OMEPRAZOLE
     Indication: PRODUCT USED FOR UNKNOWN INDICATION
     Dosage: DAILY ()
     Route: 065
  7. TRINITRIN [Concomitant]
     Active Substance: NITROGLYCERIN
     Indication: PRODUCT USED FOR UNKNOWN INDICATION
     Dosage: DAILY ()
     Route: 065
  8. OFLOXACINE [Interacting]
     Active Substance: OFLOXACIN
     Indication: URINARY TRACT INFECTION
     Dosage: UNK
     Route: 065
  9. ASPIRIN. [Suspect]
     Active Substance: ASPIRIN
     Indication: PRODUCT USED FOR UNKNOWN INDICATION
     Dosage: UNK
     Route: 065
  10. PERINDOPRIL [Concomitant]
     Active Substance: PERINDOPRIL
     Indication: PRODUCT USED FOR UNKNOWN INDICATION
     Dosage: DAILY ()
     Route: 065

REACTIONS (16)
  - Blood urine present [Fatal]
  - Drug administration error [Fatal]
  - Haemorrhage subcutaneous [Not Recovered/Not Resolved]
  - Laryngeal haematoma [Fatal]
  - Labelled drug-drug interaction medication error [Fatal]
  - International normalised ratio increased [Fatal]
  - Cyanosis [Unknown]
  - Intra-abdominal haemorrhage [Fatal]
  - Upper airway obstruction [Fatal]
  - Asphyxia [Fatal]
  - Ecchymosis [Unknown]
  - Insomnia [Not Recovered/Not Resolved]
  - Drug level increased [Fatal]
  - Drug interaction [Fatal]
  - Overdose [Fatal]
  - Anticoagulation drug level increased [Fatal]
